FAERS Safety Report 9255867 (Version 4)
Quarter: 2013Q4

REPORT INFORMATION
  Report Type: Spontaneous
  Country: GB (occurrence: GB)
  Receive Date: 20130425
  Receipt Date: 20131007
  Transmission Date: 20140711
  Serious: Yes (Death, Hospitalization)
  Sender: FDA-Public Use
  Company Number: GB-B.I. PHARMACEUTICALS,INC./RIDGEFIELD-2013-UK-00931UK

PATIENT
  Sex: Female
  Weight: 127 kg

DRUGS (9)
  1. PRADAXA [Suspect]
     Indication: ATRIAL FIBRILLATION
     Route: 048
  2. PRADAXA [Suspect]
     Indication: CEREBROVASCULAR ACCIDENT PROPHYLAXIS
  3. LANSOPRAZOLE [Concomitant]
     Dosage: 30 MG
  4. RAMIPRIL [Concomitant]
  5. PARACETAMOL [Concomitant]
  6. BEDROFLUMETHIAZIDE [Concomitant]
     Dosage: 2.5 MG
  7. BISOPROLOL [Concomitant]
     Dosage: 2.5 MG
  8. ADCAL D3 [Concomitant]
     Dosage: 2 ANZ
  9. ALENDRONIC ACID [Concomitant]
     Dosage: WEEKLY

REACTIONS (6)
  - Haemorrhage [Fatal]
  - Multi-organ failure [Fatal]
  - Injury [Unknown]
  - Fall [Unknown]
  - Mediastinal haematoma [Unknown]
  - Rib fracture [Unknown]
